FAERS Safety Report 18906741 (Version 6)
Quarter: 2022Q2

REPORT INFORMATION
  Report Type: Spontaneous
  Country: US (occurrence: US)
  Receive Date: 20210217
  Receipt Date: 20220513
  Transmission Date: 20220721
  Serious: No
  Sender: FDA-Public Use
  Company Number: US-PFIZER INC-2020465337

PATIENT
  Age: 63 Year
  Sex: Female

DRUGS (3)
  1. XELJANZ XR [Suspect]
     Active Substance: TOFACITINIB CITRATE
     Indication: Psoriatic arthropathy
     Dosage: 11 MG, DAILY
     Route: 048
     Dates: start: 202008
  2. XELJANZ XR [Suspect]
     Active Substance: TOFACITINIB CITRATE
     Indication: Rheumatoid arthritis
  3. XELJANZ XR [Suspect]
     Active Substance: TOFACITINIB CITRATE
     Indication: Antiphospholipid antibodies

REACTIONS (8)
  - Product dose omission issue [Unknown]
  - Overweight [Unknown]
  - Dysstasia [Unknown]
  - Loss of personal independence in daily activities [Unknown]
  - Depressed mood [Unknown]
  - Rash [Unknown]
  - Rash [Unknown]
  - Rash [Unknown]

NARRATIVE: CASE EVENT DATE: 20200101
